FAERS Safety Report 6466304-6 (Version None)
Quarter: 2009Q4

REPORT INFORMATION
  Report Type: 
  Country: None (occurrence: None)
  Receive Date: 20091201
  Receipt Date: 20091201
  Transmission Date: 20100525
  Serious: Yes (Death)
  Sender: FDA-Public Use
  Company Number: None

PATIENT
  Age: 43 Year
  Sex: Male
  Weight: 72.5755 kg

DRUGS (1)
  1. CYCLOBENAZPRINE [Suspect]
     Indication: BACK PAIN
     Dosage: ONE-HALF TO 1 TABLET 3 TIMES DAY IM
     Route: 030
     Dates: start: 20091025, end: 20091031

REACTIONS (4)
  - ARRHYTHMIA [None]
  - CARDIAC ARREST [None]
  - FALL [None]
  - RESPIRATORY ARREST [None]
